FAERS Safety Report 15369112 (Version 1)
Quarter: 2018Q3

REPORT INFORMATION
  Report Type: Spontaneous
  Country: MD (occurrence: MD)
  Receive Date: 20180911
  Receipt Date: 20180911
  Transmission Date: 20181010
  Serious: Yes (Other)
  Sender: FDA-Public Use
  Company Number: MD-SUN PHARMACEUTICAL INDUSTRIES LTD-2018RR-184001

PATIENT
  Age: 5 Year
  Sex: Male

DRUGS (2)
  1. CONVULEX [Suspect]
     Active Substance: VALPROIC ACID
     Indication: NEURONAL CEROID LIPOFUSCINOSIS
     Dosage: 50 MG/KG, DAILY
     Route: 065
     Dates: start: 201409
  2. LEVETIRACETAM. [Suspect]
     Active Substance: LEVETIRACETAM
     Indication: NEURONAL CEROID LIPOFUSCINOSIS
     Dosage: 60 MG/KG, DAILY
     Route: 065
     Dates: start: 201405, end: 201507

REACTIONS (1)
  - Condition aggravated [Not Recovered/Not Resolved]

NARRATIVE: CASE EVENT DATE: 201409
